FAERS Safety Report 11246051 (Version 4)
Quarter: 2015Q4

REPORT INFORMATION
  Report Type: Spontaneous
  Country: US (occurrence: US)
  Receive Date: 20150708
  Receipt Date: 20151118
  Transmission Date: 20160304
  Serious: Yes (Hospitalization)
  Sender: FDA-Public Use
  Company Number: US-HORIZON-ACT-0107-2015

PATIENT
  Age: 60 Year
  Sex: Female

DRUGS (2)
  1. ACTIMMUNE [Suspect]
     Active Substance: INTERFERON GAMMA-1B
     Indication: INTESTINAL HAEMORRHAGE
     Dates: start: 20150618, end: 20150624
  2. HYDROCHLOROTHIAZIDE. [Concomitant]
     Active Substance: HYDROCHLOROTHIAZIDE

REACTIONS (14)
  - Feeling abnormal [Unknown]
  - Aspartate aminotransferase increased [Unknown]
  - Vomiting [Unknown]
  - Pyrexia [Unknown]
  - Skin exfoliation [Unknown]
  - Abdominal distension [Unknown]
  - Eructation [Unknown]
  - Skin discolouration [Unknown]
  - Diarrhoea [Unknown]
  - Off label use [Unknown]
  - Alanine aminotransferase increased [Unknown]
  - Pruritus [Unknown]
  - White blood cell count decreased [Unknown]
  - Dehydration [None]

NARRATIVE: CASE EVENT DATE: 20150622
